FAERS Safety Report 14481643 (Version 3)
Quarter: 2021Q3

REPORT INFORMATION
  Report Type: Report from Study
  Country: US (occurrence: US)
  Receive Date: 20180202
  Receipt Date: 20210809
  Transmission Date: 20211014
  Serious: Yes (Hospitalization)
  Sender: FDA-Public Use
  Company Number: US-TEVA-2018-US-852773

PATIENT
  Age: 37 Year
  Sex: Female
  Weight: 124 kg

DRUGS (10)
  1. FERROUS SULFATE. [Concomitant]
     Active Substance: FERROUS SULFATE
     Route: 065
     Dates: start: 20170519
  2. OFATUMUMAB OR TERIFLUNOMIDE [Suspect]
     Active Substance: OFATUMUMAB
     Indication: MULTIPLE SCLEROSIS RELAPSE
     Dosage: MOST RECENT DOSE ON 09 AUG 2017
     Route: 058
     Dates: start: 20170519
  3. OSCAL D [Concomitant]
     Active Substance: CALCIUM CARBONATE\CHOLECALCIFEROL
     Route: 065
  4. OFATUMUMAB OR TERIFLUNOMIDE [Suspect]
     Active Substance: OFATUMUMAB
     Route: 048
     Dates: start: 20170519
  5. VITAMIN D [Concomitant]
     Active Substance: VITAMIN D NOS
     Route: 065
  6. TOPROL XL [Concomitant]
     Active Substance: METOPROLOL SUCCINATE
     Route: 065
  7. HYDROCHLOROTHIAZIDE. [Concomitant]
     Active Substance: HYDROCHLOROTHIAZIDE
     Route: 065
  8. NORETHINDRONE. [Concomitant]
     Active Substance: NORETHINDRONE
     Route: 065
     Dates: start: 20170815
  9. AYGESTIN [Suspect]
     Active Substance: NORETHINDRONE ACETATE
     Indication: CONTRACEPTION
     Route: 048
     Dates: start: 20170805
  10. LOESTRIN 1.5 [Concomitant]
     Route: 065

REACTIONS (2)
  - Heavy menstrual bleeding [Recovered/Resolved]
  - Anaemia [Recovered/Resolved]

NARRATIVE: CASE EVENT DATE: 20170822
